FAERS Safety Report 7055308-0 (Version None)
Quarter: 2010Q4

REPORT INFORMATION
  Report Type: 
  Country: None (occurrence: None)
  Receive Date: 20101020
  Receipt Date: 20101020
  Transmission Date: 20110411
  Serious: Yes (Other)
  Sender: FDA-Public Use
  Company Number: None

PATIENT
  Sex: Female

DRUGS (1)
  1. NIRAVAM [Suspect]
     Indication: ANXIETY DISORDER
     Dosage: 1MG TID PO
     Route: 048
     Dates: start: 20080901

REACTIONS (5)
  - AGITATION [None]
  - DRUG HYPERSENSITIVITY [None]
  - INSOMNIA [None]
  - PRURITUS [None]
  - RASH [None]
